FAERS Safety Report 5914488-8 (Version None)
Quarter: 2008Q4

REPORT INFORMATION
  Report Type: 
  Country: None (occurrence: None)
  Receive Date: 20081008
  Receipt Date: 20081001
  Transmission Date: 20090506
  Serious: Yes (Hospitalization)
  Sender: FDA-Public Use
  Company Number: 2008SP020052

PATIENT
  Age: 81 Year
  Sex: Female
  Weight: 60 kg

DRUGS (2)
  1. TEMODAL [Suspect]
     Indication: GLIOBLASTOMA
     Dosage: 240 MG; QD; PO
     Route: 048
     Dates: start: 20080819, end: 20080823
  2. DEPAKENE [Suspect]
     Indication: CONVULSION PROPHYLAXIS
     Dosage: 1 GM; QD; PO
     Route: 048
     Dates: start: 20080731, end: 20080915

REACTIONS (4)
  - ANGIOMYOLIPOMA [None]
  - CYTOLYTIC HEPATITIS [None]
  - HEPATIC STEATOSIS [None]
  - RENAL DISORDER [None]
